FAERS Safety Report 13664511 (Version 1)
Quarter: 2017Q2

REPORT INFORMATION
  Report Type: Spontaneous
  Country: US (occurrence: US)
  Receive Date: 20170617
  Receipt Date: 20170617
  Transmission Date: 20170830
  Serious: No
  Sender: FDA-Public Use
  Company Number: None

PATIENT
  Age: 50 Year
  Sex: Female

DRUGS (3)
  1. HUMIRA [Suspect]
     Active Substance: ADALIMUMAB
  2. REMICADE [Suspect]
     Active Substance: INFLIXIMAB
  3. STELARA [Suspect]
     Active Substance: USTEKINUMAB

REACTIONS (7)
  - Rash macular [None]
  - Pruritus [None]
  - Cough [None]
  - Productive cough [None]
  - Hypotension [None]
  - Anaphylactic reaction [None]
  - Candida infection [None]

NARRATIVE: CASE EVENT DATE: 20170617
